FAERS Safety Report 9713694 (Version 1)
Quarter: 2013Q4

REPORT INFORMATION
  Report Type: Report from Study
  Country: DE (occurrence: DE)
  Receive Date: 20131126
  Receipt Date: 20131126
  Transmission Date: 20140711
  Serious: Yes (Other)
  Sender: FDA-Public Use
  Company Number: DE-B.I. PHARMACEUTICALS,INC./RIDGEFIELD-2013-BI-38263DE

PATIENT
  Age: 1 Month
  Sex: Male
  Weight: 3.7 kg

DRUGS (2)
  1. ATROVENT [Suspect]
     Dosage: 1.5 MG
     Route: 055
     Dates: start: 20131118
  2. SULTANOL [Suspect]
     Dosage: 18 MG
     Route: 055
     Dates: start: 20131118

REACTIONS (3)
  - Accidental exposure to product by child [Unknown]
  - Tachycardia [Unknown]
  - Overdose [Unknown]
